FAERS Safety Report 8952511 (Version 3)
Quarter: 2013Q2

REPORT INFORMATION
  Report Type: Spontaneous
  Country: US (occurrence: US)
  Receive Date: 20121205
  Receipt Date: 20130401
  Transmission Date: 20140414
  Serious: Yes (Hospitalization, Other)
  Sender: FDA-Public Use
  Company Number: US-BAYER-2012-126400

PATIENT
  Age: 36 Year
  Sex: Female

DRUGS (16)
  1. YAZ [Suspect]
     Dosage: 1 TABLET, DAILY
  2. YASMIN [Suspect]
     Indication: DYSMENORRHOEA
  3. KLONOPIN [Concomitant]
  4. DILTIAZEM [Concomitant]
  5. DEPAKOTE [Concomitant]
  6. REQUIP [Concomitant]
  7. ALLEGRA [Concomitant]
  8. ADVAIR [Concomitant]
  9. ASPIRIN [Concomitant]
  10. MOTRIN [Concomitant]
  11. VAGA [Concomitant]
  12. OMEPRAZOLE [Concomitant]
  13. INVEGA [Concomitant]
     Dosage: 9 MG, DAILY
     Route: 048
     Dates: start: 20100430, end: 20110624
  14. PROPRANOLOL [Concomitant]
     Dosage: 20 MG, UNK
     Dates: start: 20101201
  15. METRONIDAZOLE [Concomitant]
     Dosage: 500 MG, UNK
     Dates: start: 20101206
  16. TRAZODONE [Concomitant]
     Dosage: 50 MG, UNK
     Dates: start: 20101220

REACTIONS (5)
  - Cholecystectomy [None]
  - Injury [None]
  - Pain [None]
  - Pulmonary embolism [None]
  - Pain [None]
